FAERS Safety Report 5708579-4 (Version None)
Quarter: 2008Q2

REPORT INFORMATION
  Report Type: 
  Country: None (occurrence: None)
  Receive Date: 20080417
  Receipt Date: 20080410
  Transmission Date: 20081010
  Serious: Yes (Other)
  Sender: FDA-Public Use
  Company Number: GB-PFIZER INC-2008032433

PATIENT
  Sex: Female

DRUGS (2)
  1. ISTIN [Suspect]
     Indication: HYPERTENSION
     Dosage: DAILY DOSE:10MG
     Route: 048
  2. ISTIN [Suspect]
     Dosage: DAILY DOSE:5MG
     Route: 048

REACTIONS (4)
  - BLOOD PRESSURE INADEQUATELY CONTROLLED [None]
  - FOREIGN BODY TRAUMA [None]
  - MALAISE [None]
  - RENAL DISORDER [None]
